FAERS Safety Report 10161541 (Version 5)
Quarter: 2014Q4

REPORT INFORMATION
  Report Type: Report from Study
  Country: SE (occurrence: SE)
  Receive Date: 20140509
  Receipt Date: 20141126
  Transmission Date: 20150528
  Serious: Yes (Hospitalization, Other)
  Sender: FDA-Public Use
  Company Number: SE-BIOGENIDEC-2014BI040025

PATIENT
  Age: 65 Year
  Sex: Male
  Weight: 88 kg

DRUGS (10)
  1. RFIXFC [Suspect]
     Active Substance: EFTRENONACOG ALFA
     Indication: FACTOR IX DEFICIENCY
     Route: 042
  2. LIPITOR [Concomitant]
     Active Substance: ATORVASTATIN CALCIUM
     Indication: HYPERLIPIDAEMIA
  3. RFIXFC [Suspect]
     Active Substance: EFTRENONACOG ALFA
     Indication: FACTOR IX DEFICIENCY
     Route: 042
     Dates: start: 20140415
  4. RFIXFC [Suspect]
     Active Substance: EFTRENONACOG ALFA
     Indication: FACTOR IX DEFICIENCY
     Route: 042
     Dates: start: 20140424
  5. RFIXFC [Suspect]
     Active Substance: EFTRENONACOG ALFA
     Indication: FACTOR IX DEFICIENCY
     Route: 042
  6. CYKLOKAPRON [Concomitant]
     Active Substance: TRANEXAMIC ACID
     Indication: FACTOR IX DEFICIENCY
     Dates: start: 1976
  7. METOPROLOL TARTRATE. [Concomitant]
     Active Substance: METOPROLOL TARTRATE
     Indication: MYOCARDIAL ISCHAEMIA
  8. EZETROL [Concomitant]
     Active Substance: EZETIMIBE
     Indication: HYPERLIPIDAEMIA
  9. ALVEDON [Concomitant]
     Active Substance: ACETAMINOPHEN
     Indication: PAIN
  10. RFIXFC [Suspect]
     Active Substance: EFTRENONACOG ALFA
     Indication: FACTOR IX DEFICIENCY
     Route: 042
     Dates: start: 20110405

REACTIONS (2)
  - Fall [Recovered/Resolved]
  - Rib fracture [Recovered/Resolved]

NARRATIVE: CASE EVENT DATE: 20140422
